FAERS Safety Report 19779557 (Version 1)
Quarter: 2021Q3

REPORT INFORMATION
  Report Type: Other
  Country: CA (occurrence: CA)
  Receive Date: 20210902
  Receipt Date: 20210902
  Transmission Date: 20211014
  Serious: Yes (Hospitalization, Other)
  Sender: FDA-Public Use
  Company Number: CA-APOTEX-2021AP039876

PATIENT
  Age: 39 Year
  Sex: Male

DRUGS (1)
  1. ACETAMINOPHEN. [Suspect]
     Active Substance: ACETAMINOPHEN
     Indication: PRODUCT USED FOR UNKNOWN INDICATION
     Dosage: 10000 MILLIGRAM, ONCE
     Route: 048

REACTIONS (9)
  - Acute hepatic failure [Recovered/Resolved]
  - Transaminases increased [Recovered/Resolved]
  - Renal failure [Recovered/Resolved]
  - Blood creatinine increased [Recovered/Resolved]
  - Intentional overdose [Recovered/Resolved]
  - Glomerular filtration rate decreased [Recovered/Resolved]
  - Suicide attempt [Recovered/Resolved]
  - Urinary casts [Recovered/Resolved]
  - Hyperbilirubinaemia [Recovered/Resolved]
